APPROVED DRUG PRODUCT: NOXAFIL
Active Ingredient: POSACONAZOLE
Strength: 100MG **Federal Register determination that product was not discontinued or withdrawn for safety or effectiveness reasons**
Dosage Form/Route: TABLET, DELAYED RELEASE;ORAL
Application: N205053 | Product #001
Applicant: MERCK SHARP AND DOHME CORP
Approved: Nov 25, 2013 | RLD: Yes | RS: No | Type: DISCN

EXCLUSIVITY:
Code: ODE-355 | Date: Jun 17, 2028